FAERS Safety Report 24534386 (Version 1)
Quarter: 2024Q4

REPORT INFORMATION
  Report Type: Spontaneous
  Country: IT (occurrence: IT)
  Receive Date: 20241022
  Receipt Date: 20241022
  Transmission Date: 20250114
  Serious: No
  Sender: JAZZ
  Company Number: IT-JAZZ PHARMACEUTICALS-2024-IT-006634

PATIENT
  Age: 15 Year
  Sex: Female

DRUGS (2)
  1. XYREM [Suspect]
     Active Substance: SODIUM OXYBATE
     Indication: Narcolepsy
     Dosage: 3.5 GRAMS AT ABOUT 23:30 AND A SECOND EQUAL DOSE AFTER 3.5 H
     Dates: start: 201912
  2. XYREM [Suspect]
     Active Substance: SODIUM OXYBATE
     Indication: Social avoidant behaviour

REACTIONS (3)
  - Weight decreased [Unknown]
  - Therapeutic product effect incomplete [Unknown]
  - Off label use [Unknown]
